FAERS Safety Report 20784557 (Version 1)
Quarter: 2022Q2

REPORT INFORMATION
  Report Type: Spontaneous
  Country: PL (occurrence: PL)
  Receive Date: 20220504
  Receipt Date: 20220504
  Transmission Date: 20220721
  Serious: Yes (Other)
  Sender: FDA-Public Use
  Company Number: PL-002147023-NVSC2022PL094130

PATIENT

DRUGS (17)
  1. RUXOLITINIB [Suspect]
     Active Substance: RUXOLITINIB
     Indication: Primary myelofibrosis
     Dosage: 15 MG, BID (2X 15 MG)
     Route: 065
     Dates: start: 202002
  2. RUXOLITINIB [Suspect]
     Active Substance: RUXOLITINIB
     Dosage: UNK (15-0-10 MG)
     Route: 065
     Dates: start: 202003
  3. RUXOLITINIB [Suspect]
     Active Substance: RUXOLITINIB
     Dosage: 10 MG, BID (2X10MG)
     Route: 065
     Dates: start: 202004
  4. RUXOLITINIB [Suspect]
     Active Substance: RUXOLITINIB
     Dosage: 15 MG, BID (2X 15 MG)
     Route: 065
     Dates: start: 202005
  5. RUXOLITINIB [Suspect]
     Active Substance: RUXOLITINIB
     Dosage: 15 MG, BID (2X 15MG)
     Route: 065
     Dates: start: 202006
  6. RUXOLITINIB [Suspect]
     Active Substance: RUXOLITINIB
     Dosage: UNK (15-0-10)
     Route: 065
     Dates: start: 20200703
  7. RUXOLITINIB [Suspect]
     Active Substance: RUXOLITINIB
     Dosage: UNK (15-0-10)
     Route: 065
     Dates: start: 20200731
  8. RUXOLITINIB [Suspect]
     Active Substance: RUXOLITINIB
     Dosage: UNK (15-0-10)
     Route: 065
     Dates: start: 202008
  9. RUXOLITINIB [Suspect]
     Active Substance: RUXOLITINIB
     Dosage: UNK (15-0-10)
     Route: 065
     Dates: start: 202009
  10. RUXOLITINIB [Suspect]
     Active Substance: RUXOLITINIB
     Dosage: 5 MG, BID (2X 5MG)
     Route: 065
  11. RUXOLITINIB [Suspect]
     Active Substance: RUXOLITINIB
     Dosage: 5 MG, QD (1X 5MG)
     Route: 065
  12. RUXOLITINIB [Suspect]
     Active Substance: RUXOLITINIB
     Dosage: 5 MG, BID (2X5MG)
     Route: 065
  13. RUXOLITINIB [Suspect]
     Active Substance: RUXOLITINIB
     Dosage: UNK
     Route: 065
  14. THIOTEPA [Concomitant]
     Active Substance: THIOTEPA
     Indication: Product used for unknown indication
     Dosage: UNK
     Route: 065
  15. FLUDARABINE [Concomitant]
     Active Substance: FLUDARABINE PHOSPHATE
     Indication: Product used for unknown indication
     Dosage: UNK
     Route: 065
  16. BUSULFAN [Concomitant]
     Active Substance: BUSULFAN
     Indication: Product used for unknown indication
     Dosage: UNK
     Route: 065
  17. THYMOGLOBULIN [Concomitant]
     Active Substance: LAPINE T-LYMPHOCYTE IMMUNE GLOBULIN
     Indication: Product used for unknown indication
     Dosage: UNK
     Route: 065

REACTIONS (9)
  - Capillary leak syndrome [Unknown]
  - Oedema peripheral [Unknown]
  - Pleural effusion [Unknown]
  - Cataract [Unknown]
  - Hepatosplenomegaly [Unknown]
  - Vitreous haemorrhage [Unknown]
  - Ocular discomfort [Unknown]
  - Inappropriate schedule of product administration [Unknown]
  - Retinopathy proliferative [Unknown]
